FAERS Safety Report 18462859 (Version 2)
Quarter: 2020Q4

REPORT INFORMATION
  Report Type: Report from Study
  Country: None (occurrence: BR)
  Receive Date: 20201104
  Receipt Date: 20201110
  Transmission Date: 20210114
  Serious: Yes (Other)
  Sender: FDA-Public Use
  Company Number: BR-ABBVIE-20K-020-3631282-00

PATIENT
  Age: 52 Year
  Sex: Female

DRUGS (2)
  1. HUMIRA [Suspect]
     Active Substance: ADALIMUMAB
     Indication: RHEUMATOID ARTHRITIS
     Route: 058
     Dates: start: 20201005
  2. TRAMAL [Concomitant]
     Active Substance: TRAMADOL
     Indication: PRODUCT USED FOR UNKNOWN INDICATION

REACTIONS (14)
  - Medical procedure [Unknown]
  - Atrophy [Unknown]
  - Pain [Not Recovered/Not Resolved]
  - Swelling [Unknown]
  - Candidiasis of trachea [Unknown]
  - Illness [Unknown]
  - Immunodeficiency [Unknown]
  - Peripheral swelling [Unknown]
  - Exostosis [Unknown]
  - Insomnia [Unknown]
  - Unevaluable event [Unknown]
  - Drug ineffective [Unknown]
  - Malaise [Unknown]
  - Mobility decreased [Unknown]

NARRATIVE: CASE EVENT DATE: 2020
